FAERS Safety Report 7941533-0 (Version None)
Quarter: 2011Q4

REPORT INFORMATION
  Report Type: 
  Country: None (occurrence: None)
  Receive Date: 20111128
  Receipt Date: 20111114
  Transmission Date: 20120403
  Serious: Yes (Hospitalization, Disabling)
  Sender: FDA-Public Use
  Company Number: GB-JNJFOC-20111108389

PATIENT
  Age: 65 Year
  Sex: Male
  Weight: 51 kg

DRUGS (15)
  1. ACETAMINOPHEN [Suspect]
     Indication: PRODUCT USED FOR UNKNOWN INDICATION
     Route: 065
  2. LYRICA [Suspect]
     Indication: ABDOMINAL PAIN
     Route: 065
     Dates: start: 20080101
  3. FENTANYL-100 [Suspect]
     Route: 062
  4. ORAMORPH SR [Suspect]
     Indication: PRODUCT USED FOR UNKNOWN INDICATION
     Route: 065
  5. ORAMORPH SR [Suspect]
     Route: 065
  6. METOCLOPRAMIDE [Concomitant]
     Indication: DEPRESSION
     Route: 065
  7. ACETAMINOPHEN [Suspect]
     Route: 065
  8. FENTANYL-100 [Suspect]
     Indication: PRODUCT USED FOR UNKNOWN INDICATION
     Route: 062
  9. AN UNKNOWN MEDICATION [Suspect]
     Indication: PRODUCT USED FOR UNKNOWN INDICATION
     Route: 065
  10. FLUOXETINE [Concomitant]
     Indication: DEPRESSION
     Route: 065
  11. AN UNKNOWN MEDICATION [Suspect]
     Route: 065
  12. TRAMADOL HYDROCHLORIDE [Suspect]
     Indication: PRODUCT USED FOR UNKNOWN INDICATION
     Route: 048
  13. TRAMADOL HYDROCHLORIDE [Suspect]
     Route: 048
  14. LYRICA [Suspect]
     Route: 065
  15. ORAMORPH SR [Suspect]
     Route: 065

REACTIONS (2)
  - ABDOMINAL PAIN [None]
  - CARDIO-RESPIRATORY ARREST [None]
